FAERS Safety Report 7737111-9 (Version None)
Quarter: 2011Q3

REPORT INFORMATION
  Report Type: 
  Country: None (occurrence: None)
  Receive Date: 20110908
  Receipt Date: 20110829
  Transmission Date: 20111222
  Serious: Yes (Other)
  Sender: FDA-Public Use
  Company Number: US-ROCHE-799662

PATIENT

DRUGS (1)
  1. CAPECITABINE [Suspect]
     Indication: ORGAN TRANSPLANT
     Dosage: DOSE REPORTED: 1 G/M2/D. ON DAYS 1-14 OF 21 DAYS CYCLE.
     Route: 048

REACTIONS (8)
  - VOMITING [None]
  - DIARRHOEA [None]
  - HYPERURICAEMIA [None]
  - PALMAR-PLANTAR ERYTHRODYSAESTHESIA SYNDROME [None]
  - ANAEMIA [None]
  - MUCOSAL INFLAMMATION [None]
  - NAUSEA [None]
  - FATIGUE [None]
